FAERS Safety Report 7621322-7 (Version None)
Quarter: 2011Q3

REPORT INFORMATION
  Report Type: 
  Country: None (occurrence: None)
  Receive Date: 20110719
  Receipt Date: 20110711
  Transmission Date: 20111222
  Serious: Yes (Other)
  Sender: FDA-Public Use
  Company Number: US-ELI_LILLY_AND_COMPANY-US200910005437

PATIENT
  Sex: Male
  Weight: 172.79 kg

DRUGS (5)
  1. BYETTA [Suspect]
     Dosage: UNK, UNKNOWN
     Route: 065
     Dates: start: 20070126, end: 20080101
  2. CELEBREX [Concomitant]
     Indication: ARTHRITIS
     Dosage: UNK
     Dates: start: 19970101
  3. METFORMIN HCL [Concomitant]
  4. AVANDIA [Concomitant]
     Indication: DIABETES MELLITUS
  5. LOTENSIN [Concomitant]
     Indication: HYPERTENSION

REACTIONS (9)
  - PANCREAS INFECTION [None]
  - RENAL DISORDER [None]
  - ABDOMINAL PAIN UPPER [None]
  - KIDNEY INFECTION [None]
  - NAUSEA [None]
  - RENAL COLIC [None]
  - RENAL FAILURE [None]
  - CHOLELITHIASIS [None]
  - CALCULUS URETERIC [None]
